FAERS Safety Report 4546612-6 (Version None)
Quarter: 2005Q1

REPORT INFORMATION
  Report Type: 
  Country: None (occurrence: None)
  Receive Date: 20050103
  Receipt Date: 20041214
  Transmission Date: 20050727
  Serious: Yes (Other)
  Sender: FDA-Public Use
  Company Number: JP_041205295

PATIENT
  Age: 75 Year
  Sex: Female

DRUGS (1)
  1. GEMZAR [Suspect]
     Indication: NON-SMALL CELL LUNG CANCER
     Dosage: 1000 MG/M2 OTHER
     Route: 050

REACTIONS (1)
  - IDIOPATHIC THROMBOCYTOPENIC PURPURA [None]
